FAERS Safety Report 5805252-9 (Version None)
Quarter: 2008Q3

REPORT INFORMATION
  Report Type: 
  Country: None (occurrence: None)
  Receive Date: 20080703
  Receipt Date: 20080624
  Transmission Date: 20090109
  Serious: No
  Sender: FDA-Public Use
  Company Number: 2008-02059

PATIENT
  Sex: Female

DRUGS (2)
  1. VELCADE [Suspect]
     Indication: MULTIPLE MYELOMA
     Dosage: 2.6 MG,
     Dates: start: 20070830, end: 20080131
  2. DOXIL [Suspect]
     Indication: MULTIPLE MYELOMA
     Dosage: 60 MG,
     Dates: start: 20070830, end: 20080131

REACTIONS (1)
  - BONE MARROW FAILURE [None]
